FAERS Safety Report 16496954 (Version 2)
Quarter: 2019Q3

REPORT INFORMATION
  Report Type: Spontaneous
  Country: US (occurrence: US)
  Receive Date: 20190628
  Receipt Date: 20190917
  Transmission Date: 20191004
  Serious: No
  Sender: FDA-Public Use
  Company Number: US-ACTELION-A-US2019-192006

PATIENT
  Sex: Female

DRUGS (1)
  1. OPSUMIT [Suspect]
     Active Substance: MACITENTAN
     Indication: PULMONARY ARTERIAL HYPERTENSION
     Dosage: UNK
     Route: 048
     Dates: start: 2019

REACTIONS (11)
  - Dyspnoea [Unknown]
  - Hypotension [Unknown]
  - Fluid retention [Unknown]
  - Product dose omission [Unknown]
  - Dependence on oxygen therapy [Unknown]
  - Therapeutic response decreased [Unknown]
  - Dyspnoea exertional [Unknown]
  - Therapeutic response unexpected [Unknown]
  - Limb discomfort [Unknown]
  - Fatigue [Unknown]
  - Feeling abnormal [Unknown]
